FAERS Safety Report 11628953 (Version 1)
Quarter: 2015Q4

REPORT INFORMATION
  Report Type: Spontaneous
  Country: CA (occurrence: CA)
  Receive Date: 20151014
  Receipt Date: 20151014
  Transmission Date: 20160304
  Serious: Yes (Death)
  Sender: FDA-Public Use
  Company Number: CA-CELGENE-CAN-2015101492

PATIENT
  Age: 3 Year
  Sex: Female

DRUGS (1)
  1. THALOMID [Suspect]
     Active Substance: THALIDOMIDE
     Indication: CHRONIC GRAFT VERSUS HOST DISEASE
     Route: 048
     Dates: start: 20150924

REACTIONS (1)
  - Multi-organ failure [Fatal]

NARRATIVE: CASE EVENT DATE: 20151005
